FAERS Safety Report 19774131 (Version 2)
Quarter: 2021Q3

REPORT INFORMATION
  Report Type: Report from Study
  Country: KW (occurrence: KW)
  Receive Date: 20210831
  Receipt Date: 20210913
  Transmission Date: 20211014
  Serious: Yes (Death)
  Sender: FDA-Public Use
  Company Number: KW-REGENERON PHARMACEUTICALS, INC.-2021-80413

PATIENT

DRUGS (1)
  1. EYLEA [Suspect]
     Active Substance: AFLIBERCEPT
     Indication: DIABETIC RETINAL OEDEMA
     Dosage: TOTAL NUMBER OF DOSES: 7
     Dates: start: 20191217, end: 20210713

REACTIONS (1)
  - Cardio-respiratory arrest [Fatal]
